FAERS Safety Report 23153544 (Version 1)
Quarter: 2023Q4

REPORT INFORMATION
  Report Type: Spontaneous
  Country: US (occurrence: US)
  Receive Date: 20231107
  Receipt Date: 20231107
  Transmission Date: 20240109
  Serious: No
  Sender: FDA-Public Use
  Company Number: US-TEVA-2023-US-2939130

PATIENT

DRUGS (1)
  1. KETOROLAC TROMETHAMINE [Suspect]
     Active Substance: KETOROLAC TROMETHAMINE
     Indication: Product used for unknown indication
     Route: 065
     Dates: start: 20230606

REACTIONS (4)
  - Pain [Unknown]
  - Joint noise [Unknown]
  - Hypoaesthesia [Unknown]
  - Breast enlargement [Unknown]

NARRATIVE: CASE EVENT DATE: 20230101
